FAERS Safety Report 7664459-9 (Version None)
Quarter: 2011Q3

REPORT INFORMATION
  Report Type: 
  Country: None (occurrence: None)
  Receive Date: 20110806
  Receipt Date: 20110216
  Transmission Date: 20111222
  Serious: No
  Sender: FDA-Public Use
  Company Number: US-ABBOTT-11P-163-0706415-00

PATIENT
  Sex: Female
  Weight: 70.37 kg

DRUGS (12)
  1. NIASPAN [Suspect]
     Indication: PRODUCT USED FOR UNKNOWN INDICATION
     Dates: start: 20101101, end: 20101201
  2. NIASPAN [Suspect]
     Dates: start: 20101201, end: 20110201
  3. THYROID TAB [Concomitant]
     Indication: AUTOIMMUNE THYROIDITIS
  4. NIASPAN [Suspect]
     Dates: start: 20101201, end: 20101201
  5. NIASPAN [Suspect]
     Dates: start: 20110215
  6. EVOXAC [Concomitant]
     Indication: DRY MOUTH
  7. REQUIP [Concomitant]
     Indication: RESTLESS LEGS SYNDROME
  8. FOLIC ACID [Concomitant]
     Indication: VITAMIN SUPPLEMENTATION
     Dosage: IN THE MORNING
  9. DIGESTIVE ENYZME  COMPLEX [Concomitant]
     Indication: PANCREATIC INSUFFICIENCY
  10. CALCIUM ACETATE [Concomitant]
     Indication: MINERAL SUPPLEMENTATION
  11. METHOTREXATE [Concomitant]
     Indication: SJOGREN'S SYNDROME
  12. EPINEPHRINE  PEN [Concomitant]
     Indication: HYPERSENSITIVITY

REACTIONS (4)
  - FLUSHING [None]
  - BURNING SENSATION [None]
  - PRURITUS [None]
  - PAIN OF SKIN [None]
